FAERS Safety Report 17581236 (Version 1)
Quarter: 2020Q1

REPORT INFORMATION
  Report Type: Spontaneous
  Country: CA (occurrence: CA)
  Receive Date: 20200325
  Receipt Date: 20200325
  Transmission Date: 20200409
  Serious: Yes (Death, Hospitalization, Other)
  Sender: FDA-Public Use
  Company Number: NVSC2020CA083688

PATIENT
  Age: 55 Year
  Sex: Female

DRUGS (2)
  1. PAMDIRONATE DISODIUM [Suspect]
     Active Substance: PAMIDRONATE DISODIUM
     Indication: BREAST CANCER
     Dosage: UNK
     Route: 042
  2. ZOMETA [Suspect]
     Active Substance: ZOLEDRONIC ACID
     Indication: BREAST CANCER
     Dosage: 4 MG, CYCLICAL
     Route: 042

REACTIONS (5)
  - Haemoglobin decreased [Fatal]
  - Haemorrhage [Fatal]
  - Dyspnoea [Fatal]
  - Red blood cell count decreased [Fatal]
  - Death [Fatal]
